FAERS Safety Report 10480246 (Version 1)
Quarter: 2014Q3

REPORT INFORMATION
  Report Type: Other
  Country: IT (occurrence: IT)
  Receive Date: 20140929
  Receipt Date: 20140929
  Transmission Date: 20150326
  Serious: Yes (Hospitalization)
  Sender: FDA-Public Use
  Company Number: IT-LUPIN PHARMACEUTICALS INC.-2014-01618

PATIENT
  Age: 65 Year
  Sex: Female

DRUGS (8)
  1. IMIPRAMINE [Suspect]
     Active Substance: IMIPRAMINE
     Indication: DEPRESSION
     Route: 048
  2. PAROXETINE [Suspect]
     Active Substance: PAROXETINE\PAROXETINE HYDROCHLORIDE
     Indication: DEPRESSION
     Route: 048
  3. AMITRIPTYLINE [Suspect]
     Active Substance: AMITRIPTYLINE
     Indication: DEPRESSION
     Route: 048
  4. TRAZODONE [Suspect]
     Active Substance: TRAZODONE HYDROCHLORIDE
     Indication: DEPRESSION
     Route: 048
  5. DELORAZEPAM [Suspect]
     Active Substance: DELORAZEPAM
     Indication: DEPRESSION
     Route: 048
  6. PERPHENAZINE. [Suspect]
     Active Substance: PERPHENAZINE
     Indication: DEPRESSION
     Route: 048
  7. GABAPENTIN. [Suspect]
     Active Substance: GABAPENTIN
     Indication: DEPRESSION
     Route: 048
  8. AMLODIPINE [Suspect]
     Active Substance: AMLODIPINE BESYLATE
     Indication: ARTERIOSPASM CORONARY
     Route: 065

REACTIONS (3)
  - Hypotension [Unknown]
  - Withdrawal syndrome [Recovered/Resolved]
  - Stress cardiomyopathy [Recovered/Resolved]
